FAERS Safety Report 10736772 (Version 2)
Quarter: 2015Q1

REPORT INFORMATION
  Report Type: Spontaneous
  Country: US (occurrence: US)
  Receive Date: 20150126
  Receipt Date: 20150219
  Transmission Date: 20150721
  Serious: Yes (Disabling)
  Sender: FDA-Public Use
  Company Number: US-009507513-1204USA04482

PATIENT
  Sex: Male
  Weight: 118.82 kg

DRUGS (1)
  1. PROPECIA [Suspect]
     Active Substance: FINASTERIDE
     Indication: ANDROGENETIC ALOPECIA
     Dosage: 1 MG, QD
     Route: 048
     Dates: start: 200008, end: 20100719

REACTIONS (16)
  - Loss of libido [Not Recovered/Not Resolved]
  - Libido decreased [Not Recovered/Not Resolved]
  - Blood triglycerides increased [Unknown]
  - Breast enlargement [Unknown]
  - Genital atrophy [Unknown]
  - Male orgasmic disorder [Unknown]
  - Malaise [Unknown]
  - Weight increased [Unknown]
  - Anxiety [Not Recovered/Not Resolved]
  - Gouty arthritis [Unknown]
  - Amnesia [Unknown]
  - Cognitive disorder [Not Recovered/Not Resolved]
  - Sexual dysfunction [Not Recovered/Not Resolved]
  - Erectile dysfunction [Not Recovered/Not Resolved]
  - Ejaculation failure [Not Recovered/Not Resolved]
  - Depression [Not Recovered/Not Resolved]

NARRATIVE: CASE EVENT DATE: 2001
